FAERS Safety Report 23078422 (Version 1)
Quarter: 2023Q4

REPORT INFORMATION
  Report Type: Report from Study
  Country: IT (occurrence: None)
  Receive Date: 20231018
  Receipt Date: 20231018
  Transmission Date: 20240110
  Serious: Yes (Hospitalization)
  Sender: FDA-Public Use
  Company Number: IT-ROCHE-3147715

PATIENT
  Age: 53 Year
  Sex: Female
  Weight: 49 kg

DRUGS (6)
  1. PERTUZUMAB [Suspect]
     Active Substance: PERTUZUMAB
     Indication: HER2 positive breast cancer
     Dosage: LAST DOSE BEFORE SAE 29/NOV/2021
     Route: 042
     Dates: start: 20210511, end: 20211129
  2. ATEZOLIZUMAB [Suspect]
     Active Substance: ATEZOLIZUMAB
     Indication: HER2 positive breast cancer
     Dosage: LAST DOSE BEFORE SAE 22/06/2022
     Route: 041
     Dates: start: 20210511, end: 20220622
  3. TRASTUZUMAB [Suspect]
     Active Substance: TRASTUZUMAB
     Indication: HER2 positive breast cancer
     Dosage: LAST DOSE BEFORE SAE 29/NOV/2021
     Route: 042
     Dates: start: 20210511, end: 20211129
  4. CARBOPLATIN [Suspect]
     Active Substance: CARBOPLATIN
     Indication: HER2 positive breast cancer
     Dosage: LAST DOSE BEFORE SAE 01/09/2021?NO. COURSES 6
     Route: 042
     Dates: start: 20210511, end: 20210901
  5. TAXOL [Suspect]
     Active Substance: PACLITAXEL
     Indication: HER2 positive breast cancer
     Dosage: LAST DOSE BEFORE SAE 01/09/2021 AT 130?NO. COURSES 6
     Route: 042
     Dates: start: 20210511, end: 20210901
  6. PERTUZUMAB\TRASTUZUMAB [Suspect]
     Active Substance: PERTUZUMAB\TRASTUZUMAB
     Indication: HER2 positive breast cancer
     Dosage: LAST DOSE BEFORE SAE 22/JUN/2022?NO. OF COURSES 9
     Route: 058
     Dates: start: 20211220, end: 20220622

REACTIONS (1)
  - Hyperglycaemia [Recovered/Resolved with Sequelae]

NARRATIVE: CASE EVENT DATE: 20220718
